FAERS Safety Report 8073253-9 (Version None)
Quarter: 2012Q1

REPORT INFORMATION
  Report Type: 
  Country: None (occurrence: None)
  Receive Date: 20120126
  Receipt Date: 20120119
  Transmission Date: 20120608
  Serious: Yes (Other)
  Sender: FDA-Public Use
  Company Number: PHEH2011US011278

PATIENT
  Sex: Female

DRUGS (4)
  1. RECLAST [Suspect]
     Dosage: 5 MG, UNK
     Route: 042
  2. RECLAST [Suspect]
     Indication: OSTEOPOROSIS
     Dosage: 5 MG, UNK
     Route: 042
  3. VITAMIN D [Concomitant]
     Dosage: 50000 U, UNK
  4. RECLAST [Suspect]
     Dosage: 5 MG, UNK
     Route: 042

REACTIONS (4)
  - VITAMIN D DECREASED [None]
  - DRUG INEFFECTIVE [None]
  - PUBIS FRACTURE [None]
  - FALL [None]
